FAERS Safety Report 5461769-0 (Version None)
Quarter: 2007Q3

REPORT INFORMATION
  Report Type: 
  Country: None (occurrence: None)
  Receive Date: 20070920
  Receipt Date: 20070914
  Transmission Date: 20080115
  Serious: No
  Sender: FDA-Public Use
  Company Number: US-JNJFOC-20070903411

PATIENT
  Age: 46 Year
  Sex: Female
  Weight: 86.18 kg

DRUGS (3)
  1. INVEGA [Suspect]
     Indication: BIPOLAR DISORDER
     Route: 048
  2. LITHIUM [Concomitant]
     Dosage: 300 MG IN THE AM AND 600 MG IN THE PM
     Route: 048
  3. KLONOPIN [Concomitant]
     Route: 048

REACTIONS (3)
  - DYSPNOEA [None]
  - MUSCLE TWITCHING [None]
  - TREMOR [None]
